FAERS Safety Report 20173349 (Version 1)
Quarter: 2021Q4

REPORT INFORMATION
  Report Type: Spontaneous
  Country: NG (occurrence: NG)
  Receive Date: 20211211
  Receipt Date: 20211211
  Transmission Date: 20220303
  Serious: Yes (Other)
  Sender: FDA-Public Use
  Company Number: NG-LUPIN PHARMACEUTICALS INC.-2021-23911

PATIENT
  Sex: Female
  Weight: 2 kg

DRUGS (1)
  1. METRONIDAZOLE [Suspect]
     Active Substance: METRONIDAZOLE
     Indication: Vaginal discharge
     Dosage: UNK
     Route: 065

REACTIONS (7)
  - Neonatal respiratory distress [Unknown]
  - Corneal dystrophy [Unknown]
  - Respiratory rate increased [Unknown]
  - Hereditary disorder [Unknown]
  - Cardiac valve disease [Unknown]
  - Low birth weight baby [Unknown]
  - Foetal exposure during pregnancy [Unknown]
